FAERS Safety Report 17490035 (Version 1)
Quarter: 2020Q1

REPORT INFORMATION
  Report Type: Spontaneous
  Country: US (occurrence: US)
  Receive Date: 20200303
  Receipt Date: 20200303
  Transmission Date: 20200409
  Serious: No
  Sender: FDA-Public Use
  Company Number: US-AKORN PHARMACEUTICALS-2019AKN02354

PATIENT
  Age: 14 Year
  Sex: Male
  Weight: 53.7 kg

DRUGS (2)
  1. ACETYLSALICYLIC ACID PADS [Concomitant]
     Route: 061
  2. MYORISAN [Suspect]
     Active Substance: ISOTRETINOIN
     Indication: ACNE CYSTIC
     Dosage: 40 MG, 1X/DAY
     Dates: start: 20191014, end: 201910

REACTIONS (5)
  - Headache [Recovered/Resolved]
  - Tinnitus [Unknown]
  - Ear pain [Recovered/Resolved]
  - Off label use [Recovered/Resolved]
  - Deafness unilateral [Recovered/Resolved]

NARRATIVE: CASE EVENT DATE: 201910
